FAERS Safety Report 6181661-6 (Version None)
Quarter: 2009Q2

REPORT INFORMATION
  Report Type: 
  Country: None (occurrence: None)
  Receive Date: 20090506
  Receipt Date: 20090428
  Transmission Date: 20091009
  Serious: Yes (Hospitalization)
  Sender: FDA-Public Use
  Company Number: B0569913A

PATIENT
  Age: 87 Year
  Sex: Female

DRUGS (11)
  1. ADARTREL [Suspect]
     Indication: DRUG USE FOR UNKNOWN INDICATION
     Dosage: 1.25MG PER DAY
     Route: 048
     Dates: end: 20090316
  2. NEURONTIN [Suspect]
     Indication: DRUG USE FOR UNKNOWN INDICATION
     Dosage: 1100MG PER DAY
     Route: 048
  3. INIPOMP [Suspect]
     Indication: DRUG USE FOR UNKNOWN INDICATION
     Dosage: 1UNIT PER DAY
     Route: 048
     Dates: end: 20090316
  4. ADANCOR [Suspect]
     Indication: DRUG USE FOR UNKNOWN INDICATION
     Dosage: 40MG PER DAY
     Route: 065
  5. SEROPRAM [Suspect]
     Indication: DRUG USE FOR UNKNOWN INDICATION
     Dosage: 20MG PER DAY
     Route: 048
  6. SPIRIVA [Concomitant]
     Dosage: 1UNIT PER DAY
     Route: 055
     Dates: end: 20090316
  7. FOSAMAX [Concomitant]
     Dosage: 1UNIT WEEKLY
     Route: 048
     Dates: end: 20090316
  8. TOCOLPHA CAP [Concomitant]
     Dosage: 1UNIT PER DAY
     Route: 048
     Dates: end: 20090316
  9. SERETIDE [Concomitant]
     Indication: DRUG USE FOR UNKNOWN INDICATION
     Dosage: 1UNIT THREE TIMES PER DAY
     Route: 055
     Dates: end: 20090316
  10. KARDEGIC [Concomitant]
     Route: 065
  11. FORLAX [Concomitant]
     Route: 065

REACTIONS (5)
  - DRUG INTERACTION [None]
  - FALL [None]
  - JOINT INJURY [None]
  - MOBILITY DECREASED [None]
  - VERTIGO [None]
